FAERS Safety Report 8603829-9 (Version None)
Quarter: 2012Q3

REPORT INFORMATION
  Report Type: 
  Country: None (occurrence: None)
  Receive Date: 20120818
  Receipt Date: 20120207
  Transmission Date: 20120928
  Serious: Yes (Other)
  Sender: FDA-Public Use
  Company Number: PHHY2012VE070878

PATIENT
  Sex: Female

DRUGS (6)
  1. CALCORT [Suspect]
     Dosage: 15 MG, QD
  2. ZOLEDRONOC ACID [Suspect]
     Indication: OSTEOPOROSIS
     Dosage: UNK UKN, UNK
     Route: 042
     Dates: start: 20110118
  3. ZINC SULFATE [Concomitant]
     Indication: OSTEOPOROSIS
     Dosage: ONCE A DAY
     Route: 048
  4. RAPAMUNE [Concomitant]
     Dosage: TWICE A DAY
  5. CALCIUM [Concomitant]
     Dosage: 2 DF PER WEEK
  6. VITAMIN TAB [Concomitant]
     Dosage: ONCE A DAY
     Route: 048

REACTIONS (2)
  - UPPER LIMB FRACTURE [None]
  - FALL [None]
